FAERS Safety Report 10161452 (Version 2)
Quarter: 2014Q2

REPORT INFORMATION
  Report Type: Spontaneous
  Country: US (occurrence: US)
  Receive Date: 20140509
  Receipt Date: 20140519
  Transmission Date: 20141212
  Serious: Yes (Other)
  Sender: FDA-Public Use
  Company Number: US-AMGEN-USASP2014032684

PATIENT
  Age: 58 Year
  Sex: Male
  Weight: 97.51 kg

DRUGS (6)
  1. ENBREL [Suspect]
     Indication: PSORIASIS
     Dosage: 50 MG, 2 TIMES/WK
     Route: 058
     Dates: start: 20140407
  2. HYZAAR [Concomitant]
     Indication: HYPERTENSION
     Dosage: UNK, 50/12.5 QD,
     Route: 048
  3. ATORVASTATIN [Concomitant]
     Indication: HYPERCHOLESTEROLAEMIA
     Dosage: 20 MG, QD
     Route: 048
  4. ASPIRIN [Concomitant]
     Dosage: 81 MG, BID
     Route: 048
  5. FLEXERIL                           /00428402/ [Concomitant]
     Indication: PAIN
     Dosage: 10 MG, AS NECESSARY
     Route: 048
  6. ULTRAM                             /00599202/ [Concomitant]
     Indication: PAIN
     Dosage: 50 MG, AS NECESSARY
     Route: 048

REACTIONS (4)
  - Depression [Unknown]
  - Anxiety [Unknown]
  - Headache [Recovered/Resolved]
  - Fatigue [Recovered/Resolved]
